FAERS Safety Report 8845469 (Version 1)
Quarter: 2012Q4

REPORT INFORMATION
  Report Type: Spontaneous
  Country: US (occurrence: None)
  Receive Date: 20121015
  Receipt Date: 20121015
  Transmission Date: 20130627
  Serious: Yes (Other)
  Sender: FDA-Public Use
  Company Number: AUR-APL-2012-04372

PATIENT
  Age: 69 Year
  Sex: Female

DRUGS (10)
  1. MIRTAZAPINE [Suspect]
  2. QUETIAPINE [Suspect]
  3. ALPRAZOLAM [Suspect]
  4. VENLAFAXINE [Suspect]
  5. BUPROPION [Suspect]
     Route: 048
  6. TEMAZEPAM [Suspect]
  7. TEMAZEPAM [Suspect]
  8. ASPIRIN (ACETYLSALICYLIC ACID) [Concomitant]
  9. CLOPIDOGREL (CLOPIDOGREL) [Concomitant]
  10. ATENOLOL (ATENOLOL) [Concomitant]

REACTIONS (18)
  - Depression [None]
  - Asthma [None]
  - Substance-induced psychotic disorder [None]
  - Mania [None]
  - Hallucination, visual [None]
  - Decreased interest [None]
  - Anxiety [None]
  - Dysphagia [None]
  - Choking [None]
  - Nausea [None]
  - Vomiting [None]
  - Fear [None]
  - Suicidal ideation [None]
  - Decreased appetite [None]
  - Weight decreased [None]
  - Tearfulness [None]
  - Chest pain [None]
  - Amnesia [None]
